FAERS Safety Report 5590067-X (Version None)
Quarter: 2008Q1

REPORT INFORMATION
  Report Type: 
  Country: None (occurrence: None)
  Receive Date: 20080114
  Receipt Date: 20070214
  Transmission Date: 20080703
  Serious: No
  Sender: FDA-Public Use
  Company Number: US-ABBOTT-07P-163-0359564-00

PATIENT
  Age: 14 Month
  Sex: Female
  Weight: 12.258 kg

DRUGS (2)
  1. OMNICEF [Suspect]
     Indication: EAR INFECTION
     Route: 001
     Dates: start: 20070107
  2. INFANT'S PEDIACARE DECONGESTANT AND COUGH DROPS [Suspect]
     Indication: NASAL CONGESTION
     Route: 048
     Dates: start: 20070109

REACTIONS (2)
  - RASH [None]
  - WRONG DRUG ADMINISTERED [None]
